FAERS Safety Report 10076471 (Version 2)
Quarter: 2014Q2

REPORT INFORMATION
  Report Type: Spontaneous
  Country: CN (occurrence: CN)
  Receive Date: 20140414
  Receipt Date: 20140414
  Transmission Date: 20141212
  Serious: Yes (Other)
  Sender: FDA-Public Use
  Company Number: CN-NAPPMUNDI-GBR-2014-0017799

PATIENT
  Age: 66 Year
  Sex: Male

DRUGS (3)
  1. OXYCONTIN TABLETS [Suspect]
     Indication: PAIN
     Dosage: 20 MG, BID
     Route: 048
  2. OXYCONTIN TABLETS [Suspect]
     Dosage: 40 MG, BID
     Route: 048
  3. OXYCONTIN TABLETS [Suspect]
     Dosage: 20 MG, BID
     Route: 048

REACTIONS (1)
  - Delirium [Recovering/Resolving]
